FAERS Safety Report 6020282-2 (Version None)
Quarter: 2008Q4

REPORT INFORMATION
  Report Type: 
  Country: None (occurrence: None)
  Receive Date: 20081223
  Receipt Date: 20081223
  Transmission Date: 20090506
  Serious: Yes (Hospitalization)
  Sender: FDA-Public Use
  Company Number: None

PATIENT
  Sex: Female

DRUGS (1)
  1. GLEEVEC [Suspect]
     Indication: CHRONIC MYELOID LEUKAEMIA
     Dosage: 400MG ONCE DAILY PO
     Route: 048
     Dates: start: 20080313

REACTIONS (3)
  - CYANOSIS [None]
  - DYSPNOEA [None]
  - OESOPHAGEAL DISORDER [None]
